FAERS Safety Report 4702239-4 (Version None)
Quarter: 2005Q2

REPORT INFORMATION
  Report Type: 
  Country: None (occurrence: None)
  Receive Date: 20050624
  Receipt Date: 20050225
  Transmission Date: 20051028
  Serious: No
  Sender: FDA-Public Use
  Company Number: 2005BI004428

PATIENT
  Age: 25 Year
  Sex: Female
  Weight: 71.6683 kg

DRUGS (1)
  1. NATALIZUMAB [Suspect]
     Dosage: 300 MG;QM;IV
     Route: 042
     Dates: start: 20050224

REACTIONS (2)
  - BURNING SENSATION [None]
  - SENSORY DISTURBANCE [None]
